FAERS Safety Report 10187279 (Version 3)
Quarter: 2014Q2

REPORT INFORMATION
  Report Type: Spontaneous
  Country: GB (occurrence: GB)
  Receive Date: 20140522
  Receipt Date: 20140617
  Transmission Date: 20141212
  Serious: Yes (Death, Hospitalization)
  Sender: FDA-Public Use
  Company Number: PHFR2014GB003604

PATIENT
  Age: 54 Year
  Sex: Male

DRUGS (9)
  1. CLOZARIL [Suspect]
     Dosage: UNK
     Route: 048
     Dates: start: 20010701
  2. VENLAFAXINE [Concomitant]
  3. GABAPENTIN [Concomitant]
  4. SUSTANON                                /NET/ [Concomitant]
  5. LANSOPRAZOL [Concomitant]
  6. RAMIPRIL [Concomitant]
  7. AMITRIPTYLINE [Concomitant]
  8. NAPROXEN [Concomitant]
  9. L-THYROXINE [Concomitant]

REACTIONS (13)
  - Septic shock [Fatal]
  - Hyperkalaemia [Recovering/Resolving]
  - Coma scale abnormal [Unknown]
  - Testicular abscess [Unknown]
  - Abdominal distension [Unknown]
  - Acid base balance abnormal [Unknown]
  - Lung consolidation [Unknown]
  - Oedematous kidney [Unknown]
  - Hypotension [Not Recovered/Not Resolved]
  - Colitis [Unknown]
  - Intestinal dilatation [Unknown]
  - Lower respiratory tract infection [Unknown]
  - Renal failure acute [Unknown]
